FAERS Safety Report 5528427-5 (Version None)
Quarter: 2007Q4

REPORT INFORMATION
  Report Type: 
  Country: None (occurrence: None)
  Receive Date: 20071123
  Receipt Date: 20071113
  Transmission Date: 20080405
  Serious: Yes (Hospitalization)
  Sender: FDA-Public Use
  Company Number: GXKR2007GB09748

PATIENT
  Sex: Female

DRUGS (3)
  1. AMLODIPINE [Suspect]
  2. ASPIRIN [Suspect]
  3. PLAVIX [Suspect]

REACTIONS (3)
  - CEREBROVASCULAR ACCIDENT [None]
  - DRUG HYPERSENSITIVITY [None]
  - RASH [None]
